FAERS Safety Report 23511474 (Version 1)
Quarter: 2024Q1

REPORT INFORMATION
  Report Type: Other
  Country: US (occurrence: None)
  Receive Date: 20240212
  Receipt Date: 20240212
  Transmission Date: 20240410
  Serious: Yes (Other)
  Sender: FDA-Public Use
  Company Number: US-ROCHE-3501179

PATIENT
  Age: 61 Year
  Sex: Female
  Weight: 76.8 kg

DRUGS (22)
  1. OCREVUS [Suspect]
     Active Substance: OCRELIZUMAB
     Indication: Multiple sclerosis relapse
     Dosage: 2 VIALS OF 300MG
     Route: 042
     Dates: start: 20210410
  2. OCREVUS [Suspect]
     Active Substance: OCRELIZUMAB
     Dosage: DATE OF TREATMENT= 15/JUL/2023, 18/JUN/2022, 04/JUN/2022, 04/DEC/2021, 24/APR/2021, 10/APR/2021
     Route: 042
     Dates: start: 20221123
  3. OCREVUS [Suspect]
     Active Substance: OCRELIZUMAB
     Route: 042
     Dates: start: 2020
  4. DALFAMPRIDINE [Concomitant]
     Active Substance: DALFAMPRIDINE
  5. LIORESAL [Concomitant]
     Active Substance: BACLOFEN
  6. ZYRTEC [Concomitant]
     Active Substance: CETIRIZINE HYDROCHLORIDE
  7. CETIRIZINE [Concomitant]
     Active Substance: CETIRIZINE HYDROCHLORIDE
  8. VITAMIN D3 [Concomitant]
     Active Substance: CHOLECALCIFEROL
  9. DIPHENHYDRAMINE [Concomitant]
     Active Substance: DIPHENHYDRAMINE
  10. CYMBALTA [Concomitant]
     Active Substance: DULOXETINE HYDROCHLORIDE
  11. PEPCID [Concomitant]
     Active Substance: FAMOTIDINE
  12. FLONASE [Concomitant]
     Active Substance: FLUTICASONE PROPIONATE
  13. SOLU-CORTEF [Concomitant]
     Active Substance: HYDROCORTISONE SODIUM SUCCINATE
  14. COZAAR [Concomitant]
     Active Substance: LOSARTAN POTASSIUM
  15. SOLU-MEDROL [Concomitant]
     Active Substance: METHYLPREDNISOLONE SODIUM SUCCINATE
  16. SINGULAIR [Concomitant]
     Active Substance: MONTELUKAST SODIUM
  17. TRILEPTAL [Concomitant]
     Active Substance: OXCARBAZEPINE
  18. TENORMIN [Concomitant]
     Active Substance: ATENOLOL
  19. MEDROL [Concomitant]
     Active Substance: METHYLPREDNISOLONE
  20. OXCARBAZEPINE [Concomitant]
     Active Substance: OXCARBAZEPINE
  21. BACLOFEN [Concomitant]
     Active Substance: BACLOFEN
  22. AMPYRA [Concomitant]
     Active Substance: DALFAMPRIDINE

REACTIONS (2)
  - Pneumonia [Unknown]
  - JC polyomavirus test positive [Unknown]

NARRATIVE: CASE EVENT DATE: 20201201
